FAERS Safety Report 9164024 (Version 1)
Quarter: 2013Q1

REPORT INFORMATION
  Report Type: Spontaneous
  Country: US (occurrence: US)
  Receive Date: 20130314
  Receipt Date: 20130314
  Transmission Date: 20140127
  Serious: Yes (Other)
  Sender: FDA-Public Use
  Company Number: US-RB-050774-13

PATIENT
  Age: 62 Year
  Sex: Female

DRUGS (3)
  1. DELSYM [Suspect]
     Indication: COUGH
     Dosage: TOOK 1 DOSE ON 26-FEB-2013 AND ANOTHER DOSE ON 27-FEB-2013
     Route: 048
     Dates: start: 20130226
  2. ARMOUR THYROID [Concomitant]
     Indication: PRODUCT USED FOR UNKNOWN INDICATION
  3. VITAMINS [Concomitant]
     Indication: PRODUCT USED FOR UNKNOWN INDICATION

REACTIONS (3)
  - Wheezing [Recovered/Resolved]
  - Cough [Recovered/Resolved]
  - Throat irritation [Recovered/Resolved]
